FAERS Safety Report 6537281-4 (Version None)
Quarter: 2010Q1

REPORT INFORMATION
  Report Type: 
  Country: None (occurrence: None)
  Receive Date: 20100110
  Receipt Date: 20091223
  Transmission Date: 20100710
  Serious: Yes (Hospitalization, Other)
  Sender: FDA-Public Use
  Company Number: 000866

PATIENT
  Sex: Female
  Weight: 129.2752 kg

DRUGS (4)
  1. LACOSAMIDE [Suspect]
     Indication: CONVULSION
     Dosage: (400 MG QD ORAL)
     Route: 048
     Dates: start: 20090109, end: 20090514
  2. ADVIL LIQUI-GELS [Concomitant]
  3. PRENATAL VITAMINS /01549301/ [Concomitant]
  4. LORTAB [Concomitant]

REACTIONS (14)
  - ABDOMINAL PAIN LOWER [None]
  - ANIMAL BITE [None]
  - CAESAREAN SECTION [None]
  - DRUG EXPOSURE DURING PREGNANCY [None]
  - HEADACHE [None]
  - HYPERTENSION [None]
  - POLYHYDRAMNIOS [None]
  - PRE-ECLAMPSIA [None]
  - PREGNANCY [None]
  - SCOTOMA [None]
  - SLEEP APNOEA SYNDROME [None]
  - SOCIAL ALCOHOL DRINKER [None]
  - TOBACCO USER [None]
  - VISION BLURRED [None]
